FAERS Safety Report 15385048 (Version 3)
Quarter: 2019Q2

REPORT INFORMATION
  Report Type: Spontaneous
  Country: US (occurrence: US)
  Receive Date: 20180914
  Receipt Date: 20190520
  Transmission Date: 20190711
  Serious: No
  Sender: FDA-Public Use
  Company Number: US-PFIZER INC-2018368334

PATIENT
  Age: 62 Year
  Sex: Female
  Weight: 56.92 kg

DRUGS (19)
  1. MODAFINIL. [Concomitant]
     Active Substance: MODAFINIL
     Dosage: 200 MG, AS NEEDED
     Dates: start: 20180910
  2. SYSTANE (HYPROMELLOSE 2910 (4000 MPA.S)) [Concomitant]
     Active Substance: HYPROMELLOSE 2910 (4000 MPA.S)
     Dosage: UNK, 2X/DAY
     Dates: start: 20180910
  3. RANITIDINE. [Concomitant]
     Active Substance: RANITIDINE
     Dosage: 150 MG, AS NEEDED (150 MA BID )
     Dates: start: 20180910
  4. XELJANZ XR [Suspect]
     Active Substance: TOFACITINIB CITRATE
     Indication: ARTHRITIS
     Dosage: UNK
     Route: 048
     Dates: start: 201710
  5. DIVIGEL [Concomitant]
     Active Substance: ESTRADIOL
     Dosage: UNK, DAILY (1/D)
     Dates: start: 20180910
  6. XELJANZ XR [Suspect]
     Active Substance: TOFACITINIB CITRATE
     Indication: SJOGREN^S SYNDROME
     Dosage: 11 MG, DAILY (1/D)
     Dates: start: 20171119, end: 20190201
  7. COD LIVER OIL [Concomitant]
     Active Substance: COD LIVER OIL
     Dosage: UNK
  8. COMPLERA [Concomitant]
     Active Substance: EMTRICITABINE\RILPIVIRINE HYDROCHLORIDE\TENOFOVIR DISOPROXIL FUMARATE
     Dosage: UNK, DAILY (1/D)
     Dates: start: 20180910
  9. PREVIDENT 5000 BOOST [Concomitant]
     Indication: DENTAL CARIES
     Dosage: UNK, 1X/DAY (EVENING)
     Dates: start: 20180910
  10. PROLIA [Concomitant]
     Active Substance: DENOSUMAB
     Dosage: UNK (2XYR)
     Dates: start: 20180910
  11. NAC [ACETYLCYSTEINE] [Concomitant]
     Active Substance: ACETYLCYSTEINE
     Indication: LUNG DISORDER
     Dosage: 600 MG, 2X/DAY
     Dates: start: 20180910
  12. XELJANZ [Suspect]
     Active Substance: TOFACITINIB CITRATE
     Indication: SJOGREN^S SYNDROME
     Dosage: 5 MG, 2X/DAY (5 MG 2/D)
     Dates: start: 20170919, end: 20171118
  13. PATANOL [Concomitant]
     Active Substance: OLOPATADINE HYDROCHLORIDE
     Dosage: UNK, 1X/DAY (1/D)
     Dates: start: 20180910
  14. PILOCARPINE HCL [Concomitant]
     Active Substance: PILOCARPINE HYDROCHLORIDE
     Dosage: 5 MG, 3X/DAY
     Dates: start: 20180910
  15. BIOTENE [FLUORINE;XYLITOL] [Concomitant]
     Active Substance: SODIUM FLUORIDE\SODIUM MONOFLUOROPHOSPHATE
     Indication: DENTAL CARIES
     Dosage: UNK, 1X/DAY (EVENING)
     Dates: start: 20180910
  16. BLINK [CHLOROBUTANOL;MACROGOL;MACROGOL STEARATE] [Concomitant]
     Dosage: UNK, 2X/DAY
     Dates: start: 20180910
  17. XYZAL [Concomitant]
     Active Substance: LEVOCETIRIZINE DIHYDROCHLORIDE
     Dosage: 5 MG, AS NEEDED (5 MG/D)
     Dates: start: 20180910
  18. PRISTIQ EXTENDED-RELEASE [Concomitant]
     Active Substance: DESVENLAFAXINE SUCCINATE
     Dosage: 50 MG, UNK
     Dates: start: 20180910
  19. VITAMIN D3 [Concomitant]
     Active Substance: CHOLECALCIFEROL
     Dosage: 1000 IU, 2X/DAY
     Dates: start: 20180910

REACTIONS (5)
  - Blood alkaline phosphatase increased [Not Recovered/Not Resolved]
  - Off label use [Unknown]
  - Product use in unapproved indication [Unknown]
  - Weight increased [Not Recovered/Not Resolved]
  - Hypothyroidism [Unknown]

NARRATIVE: CASE EVENT DATE: 20170919
